FAERS Safety Report 10012730 (Version 2)
Quarter: 2014Q1

REPORT INFORMATION
  Report Type: Spontaneous
  Country: GB (occurrence: GB)
  Receive Date: 20140314
  Receipt Date: 20140314
  Transmission Date: 20141002
  Serious: Yes (Other)
  Sender: FDA-Public Use
  Company Number: PHFR2014GB001574

PATIENT
  Sex: Male

DRUGS (3)
  1. CLOZARIL [Suspect]
     Indication: SCHIZOPHRENIA
     Dosage: UNK
     Route: 048
     Dates: start: 20070212
  2. CLOZARIL [Suspect]
     Dosage: 150MG MORNING AND 400 MG NIGHT
     Route: 048
  3. CLOZARIL [Suspect]
     Dosage: 550 MG, UNK
     Route: 048

REACTIONS (3)
  - Cellulitis [Recovered/Resolved with Sequelae]
  - Cyst [Unknown]
  - Incorrect dose administered [Unknown]
